FAERS Safety Report 26056394 (Version 1)
Quarter: 2025Q4

REPORT INFORMATION
  Report Type: Other
  Country: CA (occurrence: CA)
  Receive Date: 20251118
  Receipt Date: 20251118
  Transmission Date: 20260118
  Serious: Yes (Hospitalization, Other)
  Sender: GLENMARK
  Company Number: CA-GLENMARK PHARMACEUTICALS-2025GMK105581

PATIENT
  Age: 32 Year
  Sex: Female

DRUGS (2)
  1. TOPIRAMATE [Suspect]
     Active Substance: TOPIRAMATE
     Indication: Headache
     Dosage: 25 MILLIGRAM,  2 EVERY 1 DAYS
     Route: 065
  2. ACETAZOLAMIDE [Suspect]
     Active Substance: ACETAZOLAMIDE
     Indication: Headache
     Dosage: 1500 MILLIGRAM, 1 EVERY 1 DAYS
     Route: 065

REACTIONS (6)
  - Hypophosphataemia [Recovered/Resolved]
  - Tachypnoea [Recovered/Resolved]
  - Respiratory alkalosis [Recovered/Resolved]
  - Dyspnoea [Recovered/Resolved]
  - Metabolic acidosis [Recovered/Resolved]
  - Product use in unapproved indication [Unknown]
